FAERS Safety Report 5615472-4 (Version None)
Quarter: 2008Q1

REPORT INFORMATION
  Report Type: 
  Country: None (occurrence: None)
  Receive Date: 20080206
  Receipt Date: 20080201
  Transmission Date: 20080703
  Serious: Yes (Other)
  Sender: FDA-Public Use
  Company Number: NL-ASTRAZENECA-2008AC00345

PATIENT
  Age: 14907 Day
  Sex: Female

DRUGS (6)
  1. CRESTOR [Suspect]
     Indication: HYPERCHOLESTEROLAEMIA
     Route: 048
     Dates: start: 20071214, end: 20071220
  2. LIPITOR [Suspect]
     Indication: HYPERCHOLESTEROLAEMIA
     Dates: start: 20070806, end: 20071009
  3. LIPITOR [Suspect]
     Dates: start: 20071009, end: 20071214
  4. MODALIM [Suspect]
     Indication: HYPERCHOLESTEROLAEMIA
     Dates: start: 20071214
  5. ANTIHISTAMINES [Concomitant]
     Indication: URTICARIA
  6. OINTMENTS [Concomitant]
     Indication: URTICARIA

REACTIONS (5)
  - DISTURBANCE IN ATTENTION [None]
  - FATIGUE [None]
  - MYALGIA [None]
  - PERONEAL NERVE PALSY [None]
  - URTICARIA [None]
